FAERS Safety Report 18480460 (Version 7)
Quarter: 2021Q2

REPORT INFORMATION
  Report Type: Spontaneous
  Country: US (occurrence: US)
  Receive Date: 20201109
  Receipt Date: 20210405
  Transmission Date: 20210717
  Serious: Yes (Other)
  Sender: FDA-Public Use
  Company Number: NVSC2020US300017

PATIENT
  Sex: Female

DRUGS (2)
  1. ZOFRAN ODT [Suspect]
     Active Substance: ONDANSETRON HYDROCHLORIDE
     Indication: MORNING SICKNESS
     Dosage: 08 MG, Q8H
     Route: 048
     Dates: start: 20030409, end: 200307
  2. ZOFRAN [Suspect]
     Active Substance: ONDANSETRON HYDROCHLORIDE
     Indication: HYPEREMESIS GRAVIDARUM
     Dosage: 04 MG
     Route: 042
     Dates: start: 20030520

REACTIONS (15)
  - Complication of pregnancy [Unknown]
  - Anxiety [Unknown]
  - Vision blurred [Unknown]
  - Dizziness [Unknown]
  - Uterine spasm [Unknown]
  - Emotional distress [Unknown]
  - Product use in unapproved indication [Unknown]
  - Diarrhoea [Unknown]
  - Nasal congestion [Unknown]
  - Uterine contractions during pregnancy [Unknown]
  - Back pain [Unknown]
  - Constipation [Unknown]
  - Pregnancy with advanced maternal age [Unknown]
  - Maternal exposure during pregnancy [Unknown]
  - Injury [Unknown]
